FAERS Safety Report 6056785-4 (Version None)
Quarter: 2009Q1

REPORT INFORMATION
  Report Type: 
  Country: None (occurrence: None)
  Receive Date: 20090126
  Receipt Date: 20090126
  Transmission Date: 20090719
  Serious: Yes (Other)
  Sender: FDA-Public Use
  Company Number: None

PATIENT
  Sex: Male
  Weight: 72.5755 kg

DRUGS (1)
  1. PROAIR HFA [Suspect]
     Indication: ASTHMA
     Dosage: 2 INHALATIONS ONCE A WEEK PO
     Route: 048
     Dates: start: 20081215, end: 20090121

REACTIONS (2)
  - CHEST PAIN [None]
  - PRODUCT QUALITY ISSUE [None]
